FAERS Safety Report 10178553 (Version 1)
Quarter: 2014Q2

REPORT INFORMATION
  Report Type: Spontaneous
  Country: US (occurrence: None)
  Receive Date: 20140516
  Receipt Date: 20140516
  Transmission Date: 20141212
  Serious: Yes (Other)
  Sender: FDA-Public Use
  Company Number: None

PATIENT
  Age: 67 Year
  Sex: Male
  Weight: 89.36 kg

DRUGS (1)
  1. VENLAFAXINE [Suspect]
     Indication: MAJOR DEPRESSION
     Dosage: 2-CAPS/AM, ONCE DAILY, TAKEN BY MOUTH
     Route: 048
     Dates: start: 20140502, end: 20140515

REACTIONS (15)
  - Constipation [None]
  - Muscular weakness [None]
  - Fatigue [None]
  - Night sweats [None]
  - Vision blurred [None]
  - Disorientation [None]
  - Mental impairment [None]
  - Somnolence [None]
  - Fatigue [None]
  - Dyspnoea [None]
  - Loss of consciousness [None]
  - Soliloquy [None]
  - Fear [None]
  - Depressed mood [None]
  - Product substitution issue [None]
